FAERS Safety Report 23420325 (Version 1)
Quarter: 2024Q1

REPORT INFORMATION
  Report Type: Spontaneous
  Country: GB (occurrence: GB)
  Receive Date: 20240119
  Receipt Date: 20240119
  Transmission Date: 20240410
  Serious: Yes (Other)
  Sender: FDA-Public Use
  Company Number: None

PATIENT
  Age: 52 Year
  Weight: 80 kg

DRUGS (5)
  1. NAPROXEN [Suspect]
     Active Substance: NAPROXEN
     Route: 065
  2. BISOPROLOL [Concomitant]
     Active Substance: BISOPROLOL\BISOPROLOL FUMARATE
     Dates: start: 20220506
  3. RAMIPRIL [Concomitant]
     Active Substance: RAMIPRIL
     Dosage: TAKE ONE DAILY
     Dates: start: 20220506
  4. OMEPRAZOLE [Concomitant]
     Active Substance: OMEPRAZOLE
     Dates: start: 20220506
  5. BENDROFLUMETHIAZIDE [Concomitant]
     Active Substance: BENDROFLUMETHIAZIDE
     Dosage: EACH MORNING
     Dates: start: 20220506

REACTIONS (1)
  - Lip swelling [Recovered/Resolved]
